FAERS Safety Report 6430356-X (Version None)
Quarter: 2009Q4

REPORT INFORMATION
  Report Type: 
  Country: None (occurrence: None)
  Receive Date: 20091106
  Receipt Date: 20091031
  Transmission Date: 20100525
  Serious: Yes (Life-Threatening)
  Sender: FDA-Public Use
  Company Number: US-GENENTECH-293496

PATIENT
  Sex: Female

DRUGS (7)
  1. XOLAIR [Suspect]
     Indication: ASTHMA
     Dosage: 150 MG, Q2W
     Route: 058
     Dates: start: 20090420, end: 20090715
  2. ZYRTEC [Concomitant]
     Indication: DRUG USE FOR UNKNOWN INDICATION
  3. ALBUTEROL [Concomitant]
     Indication: DRUG USE FOR UNKNOWN INDICATION
  4. FLOVENT [Concomitant]
     Indication: DRUG USE FOR UNKNOWN INDICATION
  5. ASMANEX TWISTHALER [Concomitant]
     Indication: DRUG USE FOR UNKNOWN INDICATION
  6. ASTELIN [Concomitant]
     Indication: DRUG USE FOR UNKNOWN INDICATION
  7. SINGULAIR [Concomitant]
     Indication: DRUG USE FOR UNKNOWN INDICATION

REACTIONS (1)
  - ANAPHYLACTIC REACTION [None]
